FAERS Safety Report 6463609-X (Version None)
Quarter: 2009Q4

REPORT INFORMATION
  Report Type: 
  Country: None (occurrence: None)
  Receive Date: 20091201
  Receipt Date: 20091119
  Transmission Date: 20100525
  Serious: Yes (Other)
  Sender: FDA-Public Use
  Company Number: NSADSS2002030154

PATIENT
  Sex: Female
  Weight: 61.69 kg

DRUGS (3)
  1. REMICADE [Suspect]
     Indication: ARTHRITIS
     Route: 042
     Dates: start: 20020621
  2. REMICADE [Suspect]
     Indication: PSORIASIS
     Route: 042
     Dates: start: 20020621
  3. NORVASC [Concomitant]

REACTIONS (1)
  - BLOOD AMYLASE INCREASED [None]
